FAERS Safety Report 24575713 (Version 1)
Quarter: 2024Q4

REPORT INFORMATION
  Report Type: Spontaneous
  Country: US (occurrence: None)
  Receive Date: 20241101
  Receipt Date: 20241101
  Transmission Date: 20250114
  Serious: No
  Sender: Public
  Company Number: None

PATIENT
  Age: 67 Year
  Sex: Male

DRUGS (2)
  1. LISINOPRIL [Suspect]
     Active Substance: LISINOPRIL
     Indication: Hypertension
     Dosage: 30.00 MG DAILY ORAL
     Route: 048
  2. LOSARTAN [Suspect]
     Active Substance: LOSARTAN

REACTIONS (3)
  - Drug eruption [None]
  - Pharyngeal swelling [None]
  - Product substitution issue [None]

NARRATIVE: CASE EVENT DATE: 20240531
